FAERS Safety Report 10644079 (Version 2)
Quarter: 2014Q4

REPORT INFORMATION
  Report Type: Report from Study
  Country: BR (occurrence: BR)
  Receive Date: 20141210
  Receipt Date: 20141225
  Transmission Date: 20150529
  Serious: Yes (Other)
  Sender: FDA-Public Use
  Company Number: BR-SA-2014SA167539

PATIENT
  Sex: Female

DRUGS (1)
  1. LANTUS [Suspect]
     Active Substance: INSULIN GLARGINE
     Indication: DIABETES MELLITUS
     Route: 058

REACTIONS (2)
  - Malaise [Recovering/Resolving]
  - Road traffic accident [Unknown]

NARRATIVE: CASE EVENT DATE: 201409
